FAERS Safety Report 12097962 (Version 2)
Quarter: 2016Q1

REPORT INFORMATION
  Report Type: Report from Study
  Country: BR (occurrence: BR)
  Receive Date: 20160221
  Receipt Date: 20160223
  Transmission Date: 20160526
  Serious: Yes (Other)
  Sender: FDA-Public Use
  Company Number: PHHY2016BR021651

PATIENT
  Sex: Male
  Weight: 98 kg

DRUGS (2)
  1. FORASEQ [Suspect]
     Active Substance: BUDESONIDE\FORMOTEROL FUMARATE
     Dosage: 2 DF (1 TABLET IN THE MORNING AND 1 IN THE AFTERNOON)
     Route: 065
  2. FORASEQ [Suspect]
     Active Substance: BUDESONIDE\FORMOTEROL FUMARATE
     Indication: PNEUMONIA
     Dosage: 1 DF (12 UG), EVERY EVENING
     Route: 065
     Dates: start: 2014, end: 201510

REACTIONS (3)
  - Product use issue [Unknown]
  - Pneumonia [Unknown]
  - Rales [Unknown]
